FAERS Safety Report 15672870 (Version 2)
Quarter: 2019Q4

REPORT INFORMATION
  Report Type: Report from Study
  Country: US (occurrence: US)
  Receive Date: 20181129
  Receipt Date: 20191018
  Transmission Date: 20200122
  Serious: No
  Sender: FDA-Public Use
  Company Number: US-TESARO-US-2018TSO03818

PATIENT
  Age: 81 Year
  Sex: Female

DRUGS (3)
  1. NIRAPARIB CAPSULE [Suspect]
     Active Substance: NIRAPARIB
     Dosage: 300 MG, DAILY WITH DINNER
     Dates: start: 20180125
  2. NIRAPARIB CAPSULE [Suspect]
     Active Substance: NIRAPARIB
     Dosage: 300 MG, DAILY WITH DINNER
  3. NIRAPARIB CAPSULE [Suspect]
     Active Substance: NIRAPARIB
     Indication: OVARIAN CANCER
     Dosage: 300 MG, DAILY WITH EVENING MEAL
     Route: 048
     Dates: start: 20180125

REACTIONS (6)
  - Heart rate increased [Not Recovered/Not Resolved]
  - Fatigue [Recovering/Resolving]
  - Nausea [Unknown]
  - Haemoglobin decreased [Recovering/Resolving]
  - Asthenia [Recovered/Resolved]
  - Platelet count decreased [Recovered/Resolved]

NARRATIVE: CASE EVENT DATE: 201809
